FAERS Safety Report 6463159-0 (Version None)
Quarter: 2009Q4

REPORT INFORMATION
  Report Type: 
  Country: None (occurrence: None)
  Receive Date: 20091123
  Receipt Date: 20091110
  Transmission Date: 20100525
  Serious: Yes (Hospitalization)
  Sender: FDA-Public Use
  Company Number: 2009-04187

PATIENT
  Age: 81 Year
  Sex: Male
  Weight: 78 kg

DRUGS (11)
  1. VELCADE [Suspect]
     Indication: MULTIPLE MYELOMA
     Dosage: 1.3 MG/M2, UNK, INTRAVENOUS
     Route: 042
     Dates: start: 20090724, end: 20090928
  2. DEXAMETHASONE TAB [Suspect]
     Indication: MULTIPLE MYELOMA
     Dosage: 10 MG, UNK, ORAL
     Route: 048
     Dates: start: 20090728, end: 20090929
  3. COUMADIN [Concomitant]
  4. TAMSULOSIN HCL [Concomitant]
  5. DILTIAZEM [Concomitant]
  6. DIGOXIN [Concomitant]
  7. FUROSEMIDE [Concomitant]
  8. CENTRUM (VITAMINS NOS, MINERALS NOS) [Concomitant]
  9. IPRATROPIUM BROMIDE [Concomitant]
  10. ALBUTEROL SULFATE [Concomitant]
  11. ACYCLOVIR [Concomitant]

REACTIONS (9)
  - ACQUIRED DIAPHRAGMATIC EVENTRATION [None]
  - BONE LESION [None]
  - BRAIN NATRIURETIC PEPTIDE INCREASED [None]
  - CHEST PAIN [None]
  - CHEST X-RAY ABNORMAL [None]
  - FATIGUE [None]
  - INSOMNIA [None]
  - THERAPEUTIC RESPONSE DECREASED [None]
  - THROMBOSIS [None]
